FAERS Safety Report 7945276-9 (Version None)
Quarter: 2011Q4

REPORT INFORMATION
  Report Type: 
  Country: None (occurrence: None)
  Receive Date: 20111129
  Receipt Date: 20101108
  Transmission Date: 20120403
  Serious: No
  Sender: FDA-Public Use
  Company Number: US-GLAXOSMITHKLINE-A0891322A

PATIENT
  Age: 47 Year
  Sex: Male

DRUGS (8)
  1. WELLBUTRIN [Suspect]
     Indication: DEPRESSION
     Dosage: 450MG PER DAY
     Route: 048
     Dates: start: 20100501
  2. FLONASE [Concomitant]
  3. CLONAZEPAM [Concomitant]
  4. TOPAMAX [Concomitant]
  5. NALTREXONE HYDROCHLORIDE [Concomitant]
  6. FINASTERIDE [Concomitant]
  7. MINOXIDIL [Concomitant]
  8. ALBUTEROL [Concomitant]

REACTIONS (3)
  - DEPRESSION [None]
  - DRUG INEFFECTIVE [None]
  - ALOPECIA [None]
